FAERS Safety Report 13042472 (Version 1)
Quarter: 2016Q4

REPORT INFORMATION
  Report Type: Report from Study
  Country: BR (occurrence: BR)
  Receive Date: 20161219
  Receipt Date: 20161219
  Transmission Date: 20170207
  Serious: Yes (Other)
  Sender: FDA-Public Use
  Company Number: PHHY2016BR172697

PATIENT
  Sex: Female
  Weight: 67 kg

DRUGS (1)
  1. GILENYA [Suspect]
     Active Substance: FINGOLIMOD HYDROCHLORIDE
     Indication: MULTIPLE SCLEROSIS
     Dosage: 0.5 MG, QD
     Route: 048
     Dates: start: 20160218

REACTIONS (6)
  - Diabetes mellitus [Recovering/Resolving]
  - Eye swelling [Recovering/Resolving]
  - Swelling face [Recovered/Resolved]
  - Eye irritation [Recovering/Resolving]
  - Hypermetropia [Unknown]
  - Muscular weakness [Recovered/Resolved]
